FAERS Safety Report 6379013-9 (Version None)
Quarter: 2009Q3

REPORT INFORMATION
  Report Type: 
  Country: None (occurrence: None)
  Receive Date: 20090928
  Receipt Date: 20090921
  Transmission Date: 20100115
  Serious: Yes (Hospitalization)
  Sender: FDA-Public Use
  Company Number: PHHO2009ZA11593

PATIENT
  Sex: Male
  Weight: 19 kg

DRUGS (4)
  1. ELIDEL [Suspect]
     Indication: DERMATITIS ATOPIC
     Dosage: TWICE DAILY
     Route: 061
     Dates: start: 20040406
  2. HYDROCORTISONE [Concomitant]
     Indication: DERMATITIS ATOPIC
  3. ADVANTAN [Concomitant]
     Indication: DERMATITIS ATOPIC
  4. COMBIVENT [Concomitant]
     Indication: ASTHMA

REACTIONS (1)
  - PNEUMONIA [None]
